FAERS Safety Report 17804902 (Version 3)
Quarter: 2021Q1

REPORT INFORMATION
  Report Type: Report from Study
  Country: NL (occurrence: NL)
  Receive Date: 20200520
  Receipt Date: 20210119
  Transmission Date: 20210419
  Serious: Yes (Life-Threatening, Hospitalization, Other)
  Sender: FDA-Public Use
  Company Number: NL-AMGEN-NLDSL2020039253

PATIENT
  Age: 53 Year
  Sex: Female

DRUGS (17)
  1. FENTANYL. [Concomitant]
     Active Substance: FENTANYL
     Dosage: PLASTER 25UG/HR (GENERIC+DUROGESIC) 1X PER 3D 1PLASTER
  2. OMEPRAZOL [OMEPRAZOLE] [Concomitant]
     Active Substance: OMEPRAZOLE
  3. PREGABALINE [Concomitant]
     Active Substance: PREGABALIN
  4. XGEVA [Suspect]
     Active Substance: DENOSUMAB
     Indication: PROPHYLAXIS
     Dosage: 120 MILLIGRAM, Q4WK
     Route: 058
     Dates: start: 20190919
  5. FENTANYL. [Concomitant]
     Active Substance: FENTANYL
     Dosage: TABLET SUBLINGUAL 100UG WHEN NEEDED 4XD 2T
  6. DICLOFENAC SODIUM. [Concomitant]
     Active Substance: DICLOFENAC SODIUM
  7. FENTANYL. [Concomitant]
     Active Substance: FENTANYL
     Dosage: LASTER 12UG/HR (GENERIC+DUROGESIC) 1X PER 3D 1PLASTER
  8. OMEPRAZOL [OMEPRAZOLE] [Concomitant]
     Active Substance: OMEPRAZOLE
  9. MACROGOL [Concomitant]
     Active Substance: POLYETHYLENE GLYCOLS
     Dosage: SALTS PDR V DRANK (MOVIC/MOLAX/LAXT/GEN), 1D1S
  10. CAPECITABINE. [Suspect]
     Active Substance: CAPECITABINE
     Indication: BREAST CANCER METASTATIC
     Dosage: 2300 MILLIGRAM, BID
     Route: 048
     Dates: start: 20190820
  11. FENTANYL. [Concomitant]
     Active Substance: FENTANYL
     Dosage: PLASTER 50UG/HR (GENERIC+DUROGESIC) 1X PER 3D 1PLASTER
  12. CLEMASTINE [Concomitant]
     Active Substance: CLEMASTINE
  13. RIVAROXABAN [Concomitant]
     Active Substance: RIVAROXABAN
  14. MAGNESIUM HYDROXIDE. [Concomitant]
     Active Substance: MAGNESIUM HYDROXIDE
     Dosage: CHEWTABLET 724MG, 1?3D1?2T
  15. CALCIUM CARBONATE;COLECALCIFEROL [Concomitant]
     Active Substance: CALCIUM CARBONATE\CHOLECALCIFEROL
     Dosage: 1.25G/440IE (500MG CA), QD
  16. FENTANYL. [Concomitant]
     Active Substance: FENTANYL
     Dosage: TABLET SUBLINGUAL 200UG 1?4XD 1T WHEN NEEDED
  17. ONDANSETRON [Concomitant]
     Active Substance: ONDANSETRON
     Dosage: TABLET 8MG, 1D1T

REACTIONS (3)
  - Unevaluable event [Unknown]
  - Pulmonary embolism [Recovered/Resolved]
  - Bone cancer metastatic [Unknown]

NARRATIVE: CASE EVENT DATE: 20200221
